FAERS Safety Report 9229399 (Version 1)
Quarter: 2013Q2

REPORT INFORMATION
  Report Type: Spontaneous
  Country: US (occurrence: US)
  Receive Date: 20130412
  Receipt Date: 20130412
  Transmission Date: 20140414
  Serious: No
  Sender: FDA-Public Use
  Company Number: US-ASTELLAS-2013US003399

PATIENT
  Age: 66 Year
  Sex: Female

DRUGS (2)
  1. PROGRAF [Suspect]
     Indication: HEART TRANSPLANT
     Dosage: 2 MG IN THE MORNING, 1 MG IN THE EVENING
     Route: 048
     Dates: start: 2010
  2. CELLCEPT                           /01275102/ [Concomitant]
     Indication: HEART TRANSPLANT
     Dosage: UNK
     Route: 065
     Dates: start: 2010

REACTIONS (1)
  - Bronchitis [Unknown]
